FAERS Safety Report 8216675-5 (Version None)
Quarter: 2012Q1

REPORT INFORMATION
  Report Type: 
  Country: None (occurrence: None)
  Receive Date: 20120316
  Receipt Date: 20120309
  Transmission Date: 20120608
  Serious: Yes (Death, Hospitalization, Other)
  Sender: FDA-Public Use
  Company Number: JP-TEVA-2011005708

PATIENT
  Sex: Male
  Weight: 40.1 kg

DRUGS (14)
  1. UBIDECARENONE [Concomitant]
     Dates: end: 20110119
  2. SULFAMETHOXAZOLE AND TRIMETHOPRIM [Concomitant]
     Dates: start: 20101228, end: 20110117
  3. VALGANCICLOVIR HCL [Concomitant]
     Dates: start: 20110103, end: 20110111
  4. SIVELESTAT SODIUM [Concomitant]
     Dates: start: 20110109, end: 20110116
  5. ETIZOLAM [Concomitant]
     Dates: end: 20110119
  6. PANIPENEM [Concomitant]
     Dates: start: 20110102, end: 20110128
  7. BROTIZOLAM [Concomitant]
     Dates: end: 20110119
  8. VORICONAZOLE [Concomitant]
     Dates: start: 20110104, end: 20110115
  9. TREANDA [Suspect]
     Indication: MANTLE CELL LYMPHOMA
     Route: 042
     Dates: start: 20101221, end: 20101222
  10. ACYCLOVIR [Concomitant]
     Dates: start: 20101228, end: 20110117
  11. ENTECAVIR [Concomitant]
     Dates: start: 20101221
  12. ALLOPURINOL [Concomitant]
     Dates: end: 20110120
  13. FLUNITRAZEPAM [Concomitant]
     Dates: start: 20110107, end: 20110126
  14. GRANISETRON HCL [Concomitant]
     Dates: start: 20101221, end: 20101222

REACTIONS (10)
  - CARDIAC FAILURE ACUTE [None]
  - RENAL FAILURE ACUTE [None]
  - BLOOD POTASSIUM DECREASED [None]
  - NEUTROPHIL COUNT DECREASED [None]
  - BLOOD CHLORIDE INCREASED [None]
  - PNEUMOCYSTIS JIROVECI PNEUMONIA [None]
  - WHITE BLOOD CELL COUNT DECREASED [None]
  - LYMPHOCYTE COUNT DECREASED [None]
  - PLATELET COUNT DECREASED [None]
  - BLOOD SODIUM INCREASED [None]
